FAERS Safety Report 9220143 (Version 2)
Quarter: 2013Q2

REPORT INFORMATION
  Report Type: Spontaneous
  Country: US (occurrence: US)
  Receive Date: 20130409
  Receipt Date: 20130412
  Transmission Date: 20140414
  Serious: Yes (Hospitalization)
  Sender: FDA-Public Use
  Company Number: US-GILEAD-2013-0072975

PATIENT
  Sex: Male

DRUGS (4)
  1. LETAIRIS [Suspect]
     Indication: PULMONARY HYPERTENSION
     Dates: start: 20101012
  2. LETAIRIS [Suspect]
     Indication: ECHINOCOCCIASIS
  3. LETAIRIS [Suspect]
     Indication: PULMONARY EMBOLISM
  4. TYVASO [Concomitant]

REACTIONS (1)
  - Lung transplant [Unknown]
